FAERS Safety Report 10889242 (Version 1)
Quarter: 2015Q1

REPORT INFORMATION
  Report Type: Other
  Country: IT (occurrence: IT)
  Receive Date: 20150305
  Receipt Date: 20150305
  Transmission Date: 20150721
  Serious: Yes (Other)
  Sender: FDA-Public Use
  Company Number: IT-MYLANLABS-2015M1005984

PATIENT

DRUGS (3)
  1. COVERLAM [Suspect]
     Active Substance: AMLODIPINE BESYLATE\PERINDOPRIL ARGININE
     Indication: HYPERTENSION
     Dosage: 1 DF DAILY
     Route: 048
     Dates: start: 20150210, end: 20150213
  2. BISOPROLOL FUMARATE. [Suspect]
     Active Substance: BISOPROLOL FUMARATE
     Indication: PRODUCT USED FOR UNKNOWN INDICATION
     Dosage: .5 DF DAILY
     Route: 048
     Dates: start: 20150210, end: 20150213
  3. ZOLPIDEM TARTRATE. [Concomitant]
     Active Substance: ZOLPIDEM TARTRATE
     Indication: PRODUCT USED FOR UNKNOWN INDICATION

REACTIONS (6)
  - Face oedema [Recovering/Resolving]
  - Asthenia [Recovering/Resolving]
  - Oral mucosal blistering [Recovering/Resolving]
  - Nervous system disorder [Recovering/Resolving]
  - Erythema [Recovering/Resolving]
  - Hypertensive crisis [Recovering/Resolving]

NARRATIVE: CASE EVENT DATE: 20150213
